FAERS Safety Report 17203791 (Version 1)
Quarter: 2019Q4

REPORT INFORMATION
  Report Type: Spontaneous
  Country: TW (occurrence: TW)
  Receive Date: 20191226
  Receipt Date: 20191226
  Transmission Date: 20200122
  Serious: Yes (Other)
  Sender: FDA-Public Use
  Company Number: TW-EISAI MEDICAL RESEARCH-EC-2019-067591

PATIENT
  Age: 53 Year
  Sex: Male

DRUGS (3)
  1. LENVIMA [Suspect]
     Active Substance: LENVATINIB
     Indication: PRODUCT USED FOR UNKNOWN INDICATION
     Route: 048
     Dates: start: 20180919
  2. LENVIMA [Suspect]
     Active Substance: LENVATINIB
     Route: 048
  3. LENVIMA [Suspect]
     Active Substance: LENVATINIB
     Route: 048

REACTIONS (3)
  - Tooth loss [Unknown]
  - Sepsis [Unknown]
  - Hepatic encephalopathy [Unknown]

NARRATIVE: CASE EVENT DATE: 201902
